FAERS Safety Report 9894839 (Version 1)
Quarter: 2014Q1

REPORT INFORMATION
  Report Type: Spontaneous
  Country: FR (occurrence: FR)
  Receive Date: 20140213
  Receipt Date: 20140213
  Transmission Date: 20141002
  Serious: Yes (Hospitalization)
  Sender: FDA-Public Use
  Company Number: PHHY2014FR016391

PATIENT
  Age: 81 Year
  Sex: Female

DRUGS (1)
  1. AMOXICILLIN + CLAVULANATE POTASSIUM [Suspect]
     Indication: BRONCHITIS
     Dosage: 1000 MG, UNK
     Route: 048
     Dates: start: 20121103, end: 20131106

REACTIONS (2)
  - Hyperaesthesia [Recovered/Resolved]
  - Rash [Recovered/Resolved]
